FAERS Safety Report 6192239-2 (Version None)
Quarter: 2009Q2

REPORT INFORMATION
  Report Type: 
  Country: None (occurrence: None)
  Receive Date: 20090515
  Receipt Date: 20090508
  Transmission Date: 20091009
  Serious: Yes (Hospitalization)
  Sender: FDA-Public Use
  Company Number: US-GENENTECH-264126

PATIENT
  Age: 65 Year
  Sex: Female

DRUGS (10)
  1. BEVACIZUMAB [Suspect]
     Indication: BREAST CANCER
     Dosage: 893 MG, UNK
     Route: 042
     Dates: start: 20080408
  2. DOCETAXEL [Suspect]
     Indication: BREAST CANCER
     Dosage: 121 MG, UNK
     Route: 042
     Dates: start: 20080408
  3. CYCLOPHOSPHAMIDE [Suspect]
     Indication: BREAST CANCER
     Dosage: 810 MG, UNK
     Route: 042
     Dates: start: 20080408
  4. DOXORUBICIN HCL [Suspect]
     Indication: BREAST CANCER
     Dosage: 81 MG, UNK
     Route: 042
     Dates: start: 20080408
  5. ALENDRONATE [Concomitant]
     Indication: DRUG USE FOR UNKNOWN INDICATION
  6. ATORVASTATIN [Concomitant]
     Indication: DRUG USE FOR UNKNOWN INDICATION
  7. LEVOTHYROXINE SODIUM [Concomitant]
     Indication: DRUG USE FOR UNKNOWN INDICATION
  8. ZOLPIDEM [Concomitant]
     Indication: DRUG USE FOR UNKNOWN INDICATION
  9. ONDANSETRON [Concomitant]
     Indication: DRUG USE FOR UNKNOWN INDICATION
  10. PROCHLORPERAZINE [Concomitant]
     Indication: DRUG USE FOR UNKNOWN INDICATION

REACTIONS (4)
  - DEHYDRATION [None]
  - OESOPHAGITIS [None]
  - PYREXIA [None]
  - STOMATITIS [None]
